FAERS Safety Report 16049836 (Version 1)
Quarter: 2019Q1

REPORT INFORMATION
  Report Type: Spontaneous
  Country: ES (occurrence: ES)
  Receive Date: 20190307
  Receipt Date: 20190307
  Transmission Date: 20190418
  Serious: Yes (Life-Threatening)
  Sender: FDA-Public Use
  Company Number: ES-ZYDUS-034413

PATIENT
  Age: 76 Year
  Sex: Male
  Weight: 74 kg

DRUGS (6)
  1. OMEPRAZOLE. [Suspect]
     Active Substance: OMEPRAZOLE
     Indication: PROPHYLAXIS AGAINST GASTROINTESTINAL ULCER
     Dosage: 20 MG, COMPRESSED
     Route: 048
     Dates: start: 20160101
  2. BRILIQUE [Suspect]
     Active Substance: TICAGRELOR
     Indication: ANEURYSM
     Dosage: 90MG/12H
     Route: 048
     Dates: start: 20160701, end: 20181201
  3. RAMIPRIL. [Suspect]
     Active Substance: RAMIPRIL
     Indication: ANEURYSM
     Route: 048
     Dates: start: 20160601
  4. ACETYLSALICYLIC ACID [Suspect]
     Active Substance: ASPIRIN
     Indication: PLATELET AGGREGATION
     Route: 048
     Dates: start: 20160101
  5. ATORVASTATIN [Suspect]
     Active Substance: ATORVASTATIN
     Indication: ANEURYSM
     Route: 048
     Dates: start: 20160601
  6. BISOPROLOL [Suspect]
     Active Substance: BISOPROLOL
     Indication: ANEURYSM
     Route: 048
     Dates: start: 20160601

REACTIONS (1)
  - Prostate cancer [Not Recovered/Not Resolved]

NARRATIVE: CASE EVENT DATE: 20180601
